FAERS Safety Report 20477955 (Version 1)
Quarter: 2022Q1

REPORT INFORMATION
  Report Type: Spontaneous
  Country: US (occurrence: US)
  Receive Date: 20220216
  Receipt Date: 20220216
  Transmission Date: 20220423
  Serious: No
  Sender: FDA-Public Use
  Company Number: US-BIOVITRUM-2022US02132

PATIENT
  Sex: Male

DRUGS (4)
  1. SYNAGIS [Suspect]
     Active Substance: PALIVIZUMAB
     Indication: Illness
     Route: 030
     Dates: start: 202111
  2. IRON\VITAMINS [Concomitant]
     Active Substance: IRON\VITAMINS
  3. SYNAGIS [Suspect]
     Active Substance: PALIVIZUMAB
     Indication: Lung disorder
  4. SYNAGIS [Suspect]
     Active Substance: PALIVIZUMAB
     Indication: Dependence on oxygen therapy

REACTIONS (3)
  - Illness [Unknown]
  - Nasal congestion [Unknown]
  - Respiratory disorder [Unknown]
